FAERS Safety Report 10854133 (Version 1)
Quarter: 2015Q1

REPORT INFORMATION
  Report Type: Spontaneous
  Country: US (occurrence: US)
  Receive Date: 20150223
  Receipt Date: 20150223
  Transmission Date: 20150721
  Serious: Yes (Other)
  Sender: FDA-Public Use
  Company Number: US-APOTEX-2015AP006850

PATIENT
  Sex: Female

DRUGS (1)
  1. PAXIL [Suspect]
     Active Substance: PAROXETINE HYDROCHLORIDE
     Indication: PRODUCT USED FOR UNKNOWN INDICATION
     Route: 064

REACTIONS (8)
  - Cardiac murmur [Unknown]
  - Foetal exposure during pregnancy [Unknown]
  - Dementia [Unknown]
  - Attention deficit/hyperactivity disorder [Unknown]
  - Amnesia [Unknown]
  - Autism spectrum disorder [Unknown]
  - Asperger^s disorder [Unknown]
  - Asthma [Unknown]
